FAERS Safety Report 6686356-8 (Version None)
Quarter: 2010Q2

REPORT INFORMATION
  Report Type: 
  Country: None (occurrence: None)
  Receive Date: 20100414
  Receipt Date: 20100203
  Transmission Date: 20101027
  Serious: No
  Sender: FDA-Public Use
  Company Number: CRC-10-026

PATIENT
  Age: 67 Year
  Sex: Female

DRUGS (4)
  1. METFORMIN HCL [Suspect]
     Indication: TYPE 2 DIABETES MELLITUS
     Dosage: 1700MG
     Dates: start: 20091207, end: 20091218
  2. ASPRIN 100 MG [Concomitant]
  3. NORMETIN 25 MG (ATENOLOL) [Concomitant]
  4. LOSEC (OMEPRAZOLE MAGNESIUM) 20 MG [Concomitant]

REACTIONS (3)
  - FACE OEDEMA [None]
  - OEDEMA PERIPHERAL [None]
  - PRODUCT SUBSTITUTION ISSUE [None]
